FAERS Safety Report 8860610 (Version 2)
Quarter: 2013Q3

REPORT INFORMATION
  Report Type: Spontaneous
  Country: US (occurrence: US)
  Receive Date: 20121025
  Receipt Date: 20130816
  Transmission Date: 20140515
  Serious: Yes (Hospitalization, Other)
  Sender: FDA-Public Use
  Company Number: US-PFIZER INC-2012265960

PATIENT
  Age: 64 Year
  Sex: Female
  Weight: 144 kg

DRUGS (3)
  1. LIPITOR [Suspect]
     Indication: BLOOD CHOLESTEROL INCREASED
     Dosage: 100 MG, DAILY
     Route: 048
  2. NEURONTIN [Suspect]
     Dosage: UNK
  3. DETROL LA [Suspect]
     Indication: HYPERTONIC BLADDER
     Dosage: 4 MG, 2X/DAY
     Route: 048

REACTIONS (2)
  - Fall [Unknown]
  - Lymphoedema [Unknown]
